FAERS Safety Report 9314274 (Version 3)
Quarter: 2013Q2

REPORT INFORMATION
  Report Type: Report from Study
  Country: US (occurrence: US)
  Receive Date: 20130529
  Receipt Date: 20130619
  Transmission Date: 20140414
  Serious: Yes (Other)
  Sender: FDA-Public Use
  Company Number: PHEH2013US011335

PATIENT
  Age: 43 Year
  Sex: Male

DRUGS (9)
  1. FANAPT [Suspect]
     Dosage: 12 MG, BID
     Route: 048
     Dates: start: 201204
  2. FANAPT [Suspect]
     Dosage: 18 MG (6 MG IN THE MORNING AND 12 MG AT NIGHT)
     Route: 048
  3. CARBIDOPA LEVODOPA [Concomitant]
     Dosage: UNK UKN, UNK
  4. DEPAKOTE [Concomitant]
     Dosage: UNK UKN, UNK
  5. GEODON [Concomitant]
     Dosage: UNK UKN, UNK
  6. TRAMADOL [Concomitant]
     Dosage: UNK UKN, UNK
  7. DOXAZOCIN [Concomitant]
     Dosage: UNK UKN, UNK
  8. LISINOPRIL [Concomitant]
     Dosage: UNK UKN, UNK
  9. RISPERIDONE [Concomitant]
     Dosage: UNK UKN, UNK

REACTIONS (9)
  - Cardiac murmur [Unknown]
  - Heart rate increased [Unknown]
  - Palpitations [Unknown]
  - Muscle disorder [Unknown]
  - Frequent bowel movements [Unknown]
  - Incorrect dose administered [Unknown]
  - Diarrhoea [Unknown]
  - Pollakiuria [Unknown]
  - Weight increased [Unknown]
